FAERS Safety Report 5286363-6 (Version None)
Quarter: 2007Q1

REPORT INFORMATION
  Report Type: 
  Country: None (occurrence: None)
  Receive Date: 20070116
  Receipt Date: 20061022
  Transmission Date: 20070707
  Serious: No
  Sender: FDA-Public Use
  Company Number: 2006SP003780

PATIENT
  Sex: Male

DRUGS (1)
  1. LUNESTA [Suspect]
     Dosage: ORAL
     Route: 048
     Dates: start: 20050101

REACTIONS (3)
  - EYE SWELLING [None]
  - SWELLING FACE [None]
  - URTICARIA [None]
